FAERS Safety Report 6615735-X (Version None)
Quarter: 2010Q1

REPORT INFORMATION
  Report Type: 
  Country: None (occurrence: None)
  Receive Date: 20100305
  Receipt Date: 20100301
  Transmission Date: 20100710
  Serious: Yes (Death, Hospitalization)
  Sender: FDA-Public Use
  Company Number: JP-BAYER-200812437BYL

PATIENT
  Age: 58 Year
  Sex: Male
  Weight: 61 kg

DRUGS (5)
  1. NEXAVAR [Suspect]
     Indication: RENAL CELL CARCINOMA
     Dosage: UNIT DOSE: 200 MG
     Route: 048
     Dates: start: 20080702, end: 20080705
  2. EXCEGRAN [Concomitant]
     Route: 048
     Dates: start: 20080201, end: 20080705
  3. ALEVIATIN [Concomitant]
     Route: 048
     Dates: start: 20080606, end: 20080705
  4. ISOBIDE [Concomitant]
     Route: 048
     Dates: start: 20080214, end: 20080705
  5. RINDERON [Concomitant]
     Route: 048
     Dates: start: 20080214, end: 20080705

REACTIONS (3)
  - HEPATIC FUNCTION ABNORMAL [None]
  - PALMAR-PLANTAR ERYTHRODYSAESTHESIA SYNDROME [None]
  - RENAL CELL CARCINOMA [None]
